FAERS Safety Report 24611971 (Version 6)
Quarter: 2025Q2

REPORT INFORMATION
  Report Type: Report from Study
  Country: GB (occurrence: GB)
  Receive Date: 20241113
  Receipt Date: 20250623
  Transmission Date: 20250716
  Serious: Yes (Hospitalization, Other)
  Sender: JOHNSON AND JOHNSON
  Company Number: GB-JNJFOC-20241118420

PATIENT
  Sex: Female

DRUGS (1)
  1. SIMPONI [Suspect]
     Active Substance: GOLIMUMAB
     Indication: Rheumatoid arthritis
     Route: 058

REACTIONS (6)
  - Pneumonia [Recovering/Resolving]
  - Joint arthroplasty [Unknown]
  - Hospitalisation [Unknown]
  - COVID-19 pneumonia [Unknown]
  - Oesophageal disorder [Unknown]
  - Decreased appetite [Unknown]
